FAERS Safety Report 5881679-4 (Version None)
Quarter: 2008Q3

REPORT INFORMATION
  Report Type: 
  Country: None (occurrence: None)
  Receive Date: 20080912
  Receipt Date: 20080710
  Transmission Date: 20090109
  Serious: No
  Sender: FDA-Public Use
  Company Number: US-ABBOTT-08P-163-0461672-00

PATIENT
  Sex: Female

DRUGS (5)
  1. HUMIRA [Suspect]
     Indication: PITYRIASIS RUBRA PILARIS
     Route: 058
     Dates: start: 20080627
  2. HUMIRA [Suspect]
     Route: 058
     Dates: start: 20080605, end: 20080605
  3. HUMIRA [Suspect]
     Route: 058
     Dates: start: 20080613, end: 20080613
  4. HYZAAR [Concomitant]
     Indication: DRUG USE FOR UNKNOWN INDICATION
  5. OMEPRAZOLE MAGNESIUM [Concomitant]
     Indication: DRUG USE FOR UNKNOWN INDICATION

REACTIONS (1)
  - DRUG INEFFECTIVE [None]
